FAERS Safety Report 5512934-5 (Version None)
Quarter: 2007Q4

REPORT INFORMATION
  Report Type: 
  Country: None (occurrence: None)
  Receive Date: 20071112
  Receipt Date: 20071107
  Transmission Date: 20080405
  Serious: Yes (Hospitalization)
  Sender: FDA-Public Use
  Company Number: FR-BRISTOL-MYERS SQUIBB COMPANY-13696737

PATIENT
  Age: 47 Year
  Sex: Female
  Weight: 63 kg

DRUGS (3)
  1. COUMADIN [Suspect]
     Route: 048
     Dates: start: 20061210, end: 20070125
  2. PREVISCAN [Suspect]
     Indication: PULMONARY EMBOLISM
     Route: 048
     Dates: end: 20061103
  3. LOVENOX [Concomitant]
     Dates: start: 20061110, end: 20061210

REACTIONS (2)
  - LEUKOCYTOCLASTIC VASCULITIS [None]
  - VASCULAR PURPURA [None]
